FAERS Safety Report 16989249 (Version 1)
Quarter: 2019Q4

REPORT INFORMATION
  Report Type: Spontaneous
  Country: US (occurrence: US)
  Receive Date: 20190919
  Receipt Date: 20190919
  Transmission Date: 20200122
  Serious: No
  Sender: FDA-Public Use
  Company Number: None

PATIENT
  Age: 52 Year
  Sex: Female

DRUGS (1)
  1. FORTEO [Suspect]
     Active Substance: TERIPARATIDE
     Indication: OSTEOPOROSIS
     Route: 058

REACTIONS (7)
  - Amnesia [None]
  - Pain in extremity [None]
  - Myalgia [None]
  - Pain [None]
  - Depression [None]
  - Bone pain [None]
  - Migraine [None]

NARRATIVE: CASE EVENT DATE: 201905
